FAERS Safety Report 7692628-0 (Version None)
Quarter: 2011Q3

REPORT INFORMATION
  Report Type: 
  Country: None (occurrence: None)
  Receive Date: 20110819
  Receipt Date: 20110223
  Transmission Date: 20111222
  Serious: Yes (Death)
  Sender: FDA-Public Use
  Company Number: IE-AMGEN-IRLSP2011041827

PATIENT
  Sex: Female

DRUGS (7)
  1. ARANESP [Suspect]
     Indication: PRODUCT USED FOR UNKNOWN INDICATION
     Dosage: 40 A?G, QWK
     Route: 058
     Dates: start: 20090930
  2. ONE ALPHA [Concomitant]
  3. CYTAMEN [Concomitant]
  4. LEXAPRO [Concomitant]
  5. ISTIN [Concomitant]
  6. MOVIPREP [Concomitant]
  7. GALFER [Concomitant]

REACTIONS (1)
  - DEATH [None]
